FAERS Safety Report 6759752-8 (Version None)
Quarter: 2010Q2

REPORT INFORMATION
  Report Type: 
  Country: None (occurrence: None)
  Receive Date: 20100608
  Receipt Date: 20100531
  Transmission Date: 20101027
  Serious: Yes (Other)
  Sender: FDA-Public Use
  Company Number: BR-JNJFOC-20100601192

PATIENT
  Age: 1 Decade
  Sex: Male
  Weight: 17 kg

DRUGS (2)
  1. TOPAMAX [Suspect]
     Indication: CONVULSION
     Dosage: 85 MG PER DAY: TWO 15 MG CAPSULES-MORNING, ONE 25 MG CAPSULE IN AFTERNOON, TWO 15 MG CAPSULES-NIGHT
     Route: 048
  2. VALPROATE SODIUM [Concomitant]
     Indication: CONVULSION
     Route: 048

REACTIONS (5)
  - ANHIDROSIS [None]
  - ERYTHEMA [None]
  - HYPERTHERMIA [None]
  - INSOMNIA [None]
  - PRURITUS [None]
